FAERS Safety Report 9498397 (Version 1)
Quarter: 2013Q3

REPORT INFORMATION
  Report Type: Spontaneous
  Country: US (occurrence: US)
  Receive Date: 20130904
  Receipt Date: 20130904
  Transmission Date: 20140515
  Serious: Yes (Other)
  Sender: FDA-Public Use
  Company Number: US-TEVA-429601USA

PATIENT
  Sex: Female

DRUGS (1)
  1. CLARAVIS [Suspect]

REACTIONS (1)
  - Lyme disease [Unknown]
